FAERS Safety Report 25420533 (Version 1)
Quarter: 2025Q2

REPORT INFORMATION
  Report Type: Spontaneous
  Country: FR (occurrence: FR)
  Receive Date: 20250611
  Receipt Date: 20250611
  Transmission Date: 20250717
  Serious: Yes (Other)
  Sender: ALEXION PHARMACEUTICALS
  Company Number: None

PATIENT
  Age: 54 Year
  Weight: 76.7 kg

DRUGS (6)
  1. ROSUVASTATIN [Suspect]
     Active Substance: ROSUVASTATIN
     Indication: Coronary artery aneurysm
     Dosage: 5 MILLIGRAM, 1/DAY
  2. BACTRIM [Suspect]
     Active Substance: SULFAMETHOXAZOLE\TRIMETHOPRIM
     Indication: Prophylaxis
  3. ATOVAQUONE [Suspect]
     Active Substance: ATOVAQUONE
     Indication: Prophylaxis
  4. OBINUTUZUMAB [Suspect]
     Active Substance: OBINUTUZUMAB
     Indication: Immunoglobulin G4 related disease
  5. ZOLEDRONIC ACID ANHYDROUS [Suspect]
     Active Substance: ZOLEDRONIC ACID ANHYDROUS
     Indication: Osteopenia
  6. ASPIRIN [Suspect]
     Active Substance: ASPIRIN
     Indication: Coronary artery aneurysm

REACTIONS (1)
  - Mixed liver injury [Recovering/Resolving]
